FAERS Safety Report 23500588 (Version 1)
Quarter: 2024Q1

REPORT INFORMATION
  Report Type: Report from Study
  Country: GB (occurrence: GB)
  Receive Date: 20240208
  Receipt Date: 20240208
  Transmission Date: 20240410
  Serious: Yes (Other)
  Sender: FDA-Public Use
  Company Number: GB-LEO Pharma-367306

PATIENT
  Age: 23 Year
  Sex: Male

DRUGS (2)
  1. ADBRY [Suspect]
     Active Substance: TRALOKINUMAB-LDRM
     Indication: Dermatitis atopic
     Dosage: 600MG (4X150MG) AT WEEK 0
     Route: 058
     Dates: start: 20231201
  2. ADBRY [Suspect]
     Active Substance: TRALOKINUMAB-LDRM
     Indication: Dermatitis atopic
     Dosage: 300MG (2X150MG) EVERY 2 WEEKS
     Route: 058

REACTIONS (5)
  - Weight decreased [Unknown]
  - Lower respiratory tract infection [Unknown]
  - Dermatitis atopic [Not Recovered/Not Resolved]
  - Sinusitis [Unknown]
  - Hypotrichosis [Unknown]

NARRATIVE: CASE EVENT DATE: 20240101
